FAERS Safety Report 7397273-2 (Version None)
Quarter: 2011Q2

REPORT INFORMATION
  Report Type: 
  Country: None (occurrence: None)
  Receive Date: 20110406
  Receipt Date: 20110323
  Transmission Date: 20111010
  Serious: Yes (Hospitalization)
  Sender: FDA-Public Use
  Company Number: US-JNJFOC-20110303274

PATIENT
  Sex: Male
  Weight: 56.84 kg

DRUGS (7)
  1. A MULTIVITAMIN [Concomitant]
  2. REMICADE [Suspect]
     Indication: INFLAMMATORY BOWEL DISEASE
     Route: 042
  3. MESALAMINE [Concomitant]
     Route: 048
  4. FLUTICASONE PROPIONATE [Concomitant]
  5. IRON [Concomitant]
  6. OMEPRAZOLE [Concomitant]
  7. SINGULAIR [Concomitant]

REACTIONS (3)
  - GASTROENTERITIS ROTAVIRUS [None]
  - DEHYDRATION [None]
  - PNEUMOTHORAX [None]
